FAERS Safety Report 23765050 (Version 2)
Quarter: 2024Q2

REPORT INFORMATION
  Report Type: Report from Study
  Country: US (occurrence: US)
  Receive Date: 20240420
  Receipt Date: 20240624
  Transmission Date: 20240716
  Serious: Yes (Hospitalization, Disabling, Other)
  Sender: FDA-Public Use
  Company Number: US-ABBVIE-5724640

PATIENT
  Sex: Female
  Weight: 64.41 kg

DRUGS (3)
  1. HUMIRA [Suspect]
     Active Substance: ADALIMUMAB
     Indication: Rheumatoid arthritis
     Dosage: START DATE: OVER FIVE YEARS AGO?FORM STRENGTH: 40 MILLIGRAM?CITRATE FREE
     Route: 058
  2. HUMIRA [Suspect]
     Active Substance: ADALIMUMAB
     Dosage: FORM STRENGTH: 40MG?CITRATE FREE
     Route: 058
  3. PROCTO-MED HC [Concomitant]
     Active Substance: HYDROCORTISONE
     Indication: Pruritus
     Dosage: 2.5 PERCENT

REACTIONS (17)
  - Hypoacusis [Recovering/Resolving]
  - Blood cholesterol increased [Recovering/Resolving]
  - Abdominal pain [Recovered/Resolved]
  - Otorrhoea [Unknown]
  - Diverticulum intestinal [Unknown]
  - Body modification [Recovering/Resolving]
  - Pruritus [Not Recovered/Not Resolved]
  - Intestinal mass [Recovered/Resolved]
  - Thrombosis [Recovered/Resolved]
  - Anorectal swelling [Recovered/Resolved]
  - Ear infection [Recovering/Resolving]
  - Dyspepsia [Not Recovered/Not Resolved]
  - Ear haemorrhage [Recovered/Resolved]
  - Abdominal discomfort [Not Recovered/Not Resolved]
  - Diverticulitis [Recovered/Resolved]
  - Anorectal discomfort [Not Recovered/Not Resolved]
  - Haemorrhoids [Not Recovered/Not Resolved]

NARRATIVE: CASE EVENT DATE: 20230101
